FAERS Safety Report 16141087 (Version 1)
Quarter: 2019Q2

REPORT INFORMATION
  Report Type: Spontaneous
  Country: US (occurrence: US)
  Receive Date: 20190330
  Receipt Date: 20190330
  Transmission Date: 20190711
  Serious: No
  Sender: FDA-Public Use
  Company Number: None

PATIENT
  Age: 28 Year
  Sex: Female
  Weight: 65.7 kg

DRUGS (3)
  1. SUBOXONE [Suspect]
     Active Substance: BUPRENORPHINE HYDROCHLORIDE\NALOXONE HYDROCHLORIDE
     Indication: DRUG DEPENDENCE
     Dosage: ?          QUANTITY:1 1;?
     Route: 060
     Dates: start: 20190322, end: 20190324
  2. SEROQUEL [Concomitant]
     Active Substance: QUETIAPINE FUMARATE
  3. METHODONE 35 MG [Concomitant]

REACTIONS (6)
  - Gait inability [None]
  - Withdrawal syndrome [None]
  - Syncope [None]
  - Feeling cold [None]
  - Vomiting [None]
  - Hyperhidrosis [None]

NARRATIVE: CASE EVENT DATE: 20190324
